FAERS Safety Report 26165674 (Version 1)
Quarter: 2025Q4

REPORT INFORMATION
  Report Type: Spontaneous
  Country: GB (occurrence: None)
  Receive Date: 20251216
  Receipt Date: 20251216
  Transmission Date: 20260119
  Serious: Yes (Other)
  Sender: UCB
  Company Number: GB-UCBSA-2025078769

PATIENT
  Age: 37 Year

DRUGS (1)
  1. CERTOLIZUMAB [Suspect]
     Active Substance: CERTOLIZUMAB
     Indication: Axial spondyloarthritis
     Dosage: UNK

REACTIONS (8)
  - Idiopathic intracranial hypertension [Recovered/Resolved]
  - Ankylosing spondylitis [Recovering/Resolving]
  - Aphasia [Recovered/Resolved]
  - Sarcoidosis [Recovered/Resolved]
  - Confusional state [Recovered/Resolved]
  - Nausea [Recovered/Resolved]
  - Vomiting [Recovered/Resolved]
  - Headache [Recovered/Resolved]
